FAERS Safety Report 8992851 (Version 3)
Quarter: 2013Q2

REPORT INFORMATION
  Report Type: Spontaneous
  Country: US (occurrence: US)
  Receive Date: 20130102
  Receipt Date: 20130517
  Transmission Date: 20140414
  Serious: Yes (Hospitalization)
  Sender: FDA-Public Use
  Company Number: US-BAYER-2012-136579

PATIENT
  Age: 26 Year
  Sex: Female

DRUGS (6)
  1. YASMIN [Suspect]
     Indication: CONTRACEPTION
  2. FLEXERIL [Concomitant]
  3. EFFEXOR [Concomitant]
     Dosage: 150 MG, UNK
  4. IBUPROFEN [Concomitant]
     Indication: PAIN
     Dosage: UNK
     Dates: start: 20070118
  5. ATIVAN [Concomitant]
     Dosage: 0.5 MG, PRN
     Dates: start: 20070118
  6. VICODIN [Concomitant]
     Dosage: AS NEEDED
     Dates: start: 20070118

REACTIONS (2)
  - Axillary vein thrombosis [Recovered/Resolved]
  - Subclavian vein thrombosis [Recovered/Resolved]
